FAERS Safety Report 9213714 (Version 1)
Quarter: 2013Q1

REPORT INFORMATION
  Report Type: Spontaneous
  Country: US (occurrence: None)
  Receive Date: 20120827
  Receipt Date: 20120827
  Transmission Date: 20140127
  Serious: No
  Sender: FDA-Public Use
  Company Number: 351943

PATIENT
  Age: 64 Year
  Sex: Female
  Weight: 86.2 kg

DRUGS (2)
  1. VICTOZA [Suspect]
     Indication: TYPE 2 DIABETES MELLITUS
     Route: 058
     Dates: start: 20100727, end: 20100803
  2. LISINOPRIL (LISINOPRIL) [Concomitant]

REACTIONS (2)
  - Vaginal haemorrhage [None]
  - Dyspepsia [None]
